FAERS Safety Report 16432127 (Version 1)
Quarter: 2019Q2

REPORT INFORMATION
  Report Type: Spontaneous
  Country: US (occurrence: US)
  Receive Date: 20190614
  Receipt Date: 20190614
  Transmission Date: 20190711
  Serious: No
  Sender: FDA-Public Use
  Company Number: US-JNJFOC-20151014062

PATIENT
  Sex: Male

DRUGS (10)
  1. RISPERDAL [Suspect]
     Active Substance: RISPERIDONE
     Indication: MOOD SWINGS
     Route: 048
     Dates: start: 20070206, end: 20150310
  2. RISPERDAL [Suspect]
     Active Substance: RISPERIDONE
     Indication: FEELING OF DESPAIR
     Route: 048
     Dates: start: 20070206, end: 20150310
  3. RISPERDAL [Suspect]
     Active Substance: RISPERIDONE
     Indication: ANXIETY
     Dosage: VARYING DOSAGE OF 1 MG, 2 MG AND 3 MG
     Route: 048
     Dates: start: 20070126, end: 201511
  4. RISPERDAL [Suspect]
     Active Substance: RISPERIDONE
     Indication: HALLUCINATION
     Route: 048
     Dates: start: 20070206, end: 20150310
  5. RISPERDAL [Suspect]
     Active Substance: RISPERIDONE
     Indication: MOOD SWINGS
     Dosage: VARYING DOSAGE OF 1 MG, 2 MG AND 3 MG
     Route: 048
     Dates: start: 20070126, end: 201511
  6. RISPERDAL [Suspect]
     Active Substance: RISPERIDONE
     Indication: ANXIETY
     Route: 048
     Dates: start: 20070206, end: 20150310
  7. RISPERDAL [Suspect]
     Active Substance: RISPERIDONE
     Indication: FEELING OF DESPAIR
     Dosage: VARYING DOSAGE OF 1 MG, 2 MG AND 3 MG
     Route: 048
     Dates: start: 20070126, end: 201511
  8. RISPERDAL [Suspect]
     Active Substance: RISPERIDONE
     Indication: HALLUCINATION
     Dosage: VARYING DOSAGE OF 1 MG, 2 MG AND 3 MG
     Route: 048
     Dates: start: 20070126, end: 201511
  9. RISPERDAL [Suspect]
     Active Substance: RISPERIDONE
     Indication: APATHY
     Route: 048
     Dates: start: 20070206, end: 20150310
  10. RISPERDAL [Suspect]
     Active Substance: RISPERIDONE
     Indication: APATHY
     Dosage: VARYING DOSAGE OF 1 MG, 2 MG AND 3 MG
     Route: 048
     Dates: start: 20070126, end: 201511

REACTIONS (2)
  - Abnormal weight gain [Unknown]
  - Gynaecomastia [Unknown]

NARRATIVE: CASE EVENT DATE: 2007
